FAERS Safety Report 5801871-4 (Version None)
Quarter: 2008Q3

REPORT INFORMATION
  Report Type: 
  Country: None (occurrence: None)
  Receive Date: 20080707
  Receipt Date: 20080703
  Transmission Date: 20090109
  Serious: Yes (Death)
  Sender: FDA-Public Use
  Company Number: GB-ASTRAZENECA-2008GB00609

PATIENT
  Age: 19 Year
  Sex: Male
  Weight: 40 kg

DRUGS (9)
  1. OMEPRAZOLE [Suspect]
     Route: 048
  2. NIFEDIPINE [Suspect]
     Route: 065
  3. VALLERGAN [Suspect]
     Route: 065
  4. ATROVENT [Concomitant]
  5. DOMPERIDONE [Concomitant]
  6. FLIXOTIDE [Concomitant]
  7. GAVISCON [Concomitant]
  8. SEREVENT [Concomitant]
  9. VENTOLIN [Concomitant]

REACTIONS (2)
  - IDIOPATHIC THROMBOCYTOPENIC PURPURA [None]
  - PLATELET COUNT DECREASED [None]
